FAERS Safety Report 20218211 (Version 3)
Quarter: 2022Q1

REPORT INFORMATION
  Report Type: Spontaneous
  Country: JP (occurrence: JP)
  Receive Date: 20211222
  Receipt Date: 20220303
  Transmission Date: 20220423
  Serious: Yes (Life-Threatening, Hospitalization)
  Sender: FDA-Public Use
  Company Number: A202100813-002

PATIENT
  Age: 92 Year
  Sex: Male
  Weight: 50 kg

DRUGS (6)
  1. BENDAMUSTINE HYDROCHLORIDE [Suspect]
     Active Substance: BENDAMUSTINE HYDROCHLORIDE
     Indication: Diffuse large B-cell lymphoma refractory
     Dosage: 90 MG/M2, (CYCLE 1 PBR THERAPY)
     Route: 041
     Dates: start: 20210910
  2. BENDAMUSTINE HYDROCHLORIDE [Suspect]
     Active Substance: BENDAMUSTINE HYDROCHLORIDE
     Dosage: 90 MG/M2, (CYCLE 2 PBR THERAPY)
     Route: 041
     Dates: start: 20211004
  3. POLIVY [Suspect]
     Active Substance: POLATUZUMAB VEDOTIN-PIIQ
     Indication: Diffuse large B-cell lymphoma refractory
     Dosage: UNK, (CYCLE 1 PBR THERAPY)
     Route: 041
     Dates: start: 202109
  4. POLIVY [Suspect]
     Active Substance: POLATUZUMAB VEDOTIN-PIIQ
     Dosage: UNK, (CYCLE 2 PBR THERAPY)
     Route: 041
     Dates: start: 202110
  5. RITUXAN [Concomitant]
     Active Substance: RITUXIMAB
     Indication: Diffuse large B-cell lymphoma refractory
     Dosage: UNK, (CYCLE 1 PBR THERAPY)
     Route: 041
     Dates: start: 20210907
  6. RITUXAN [Concomitant]
     Active Substance: RITUXIMAB
     Dosage: UNK, (CYCLE 2 PBR THERAPY)
     Route: 041
     Dates: start: 20211004

REACTIONS (6)
  - Stevens-Johnson syndrome [Not Recovered/Not Resolved]
  - Subdural haematoma [Unknown]
  - Cellulitis [Not Recovered/Not Resolved]
  - Aspergillus test positive [Not Recovered/Not Resolved]
  - Cytomegalovirus viraemia [Recovered/Resolved]
  - Fall [Unknown]

NARRATIVE: CASE EVENT DATE: 20211101
